FAERS Safety Report 9204456 (Version 1)
Quarter: 2013Q2

REPORT INFORMATION
  Report Type: Spontaneous
  Country: IT (occurrence: IT)
  Receive Date: 20130402
  Receipt Date: 20130402
  Transmission Date: 20140414
  Serious: Yes (Life-Threatening)
  Sender: FDA-Public Use
  Company Number: IT-BAYER-2013-039427

PATIENT
  Age: 72 Year
  Sex: Male
  Weight: 103 kg

DRUGS (3)
  1. AVALOX [Suspect]
     Indication: DEVICE RELATED INFECTION
     Dosage: DAILY DOSE 400 MG
     Route: 048
     Dates: start: 20130315, end: 20130315
  2. CARVIPRESS [Concomitant]
     Indication: HYPERTENSION
     Dosage: DAILY DOSE 50 MG
     Route: 048
  3. FORZAAR [Concomitant]
     Indication: HYPERTENSION
     Dosage: DAILY DOSE 125 MG
     Route: 048

REACTIONS (2)
  - Restlessness [Not Recovered/Not Resolved]
  - Atrial fibrillation [Not Recovered/Not Resolved]
